FAERS Safety Report 9119889 (Version 7)
Quarter: 2013Q2

REPORT INFORMATION
  Report Type: Spontaneous
  Country: US (occurrence: US)
  Receive Date: 20130121
  Receipt Date: 20130427
  Transmission Date: 20140414
  Serious: Yes (Hospitalization, Other)
  Sender: FDA-Public Use
  Company Number: US-009507513-1202USA00048

PATIENT
  Sex: Female

DRUGS (3)
  1. FOSAMAX [Suspect]
     Indication: OSTEOPOROSIS
     Dosage: 70 MG, QW
     Route: 048
     Dates: start: 200308, end: 201006
  2. CHOLECALCIFEROL [Concomitant]
     Dosage: 2000 IU, QD
     Dates: start: 2000
  3. OMEPRAZOLE [Concomitant]
     Dosage: UNK
     Dates: start: 2000

REACTIONS (30)
  - Femur fracture [Unknown]
  - Open reduction of fracture [Unknown]
  - Fall [Unknown]
  - Packed red blood cell transfusion [Unknown]
  - Haemorrhoids [Unknown]
  - Hip arthroplasty [Unknown]
  - Hip arthroplasty [Unknown]
  - Hip arthroplasty [Unknown]
  - Lumbar vertebral fracture [Unknown]
  - Fractured sacrum [Unknown]
  - Pain [Unknown]
  - Ileus [Recovered/Resolved]
  - Gastroenteritis [Recovered/Resolved]
  - Osteoarthritis [Not Recovered/Not Resolved]
  - Skeletal injury [Unknown]
  - Fracture [Unknown]
  - Pelvic fracture [Unknown]
  - Device dislocation [Unknown]
  - Appendicectomy [Unknown]
  - Dermatitis contact [Unknown]
  - Incisional hernia repair [Unknown]
  - Hepatitis [Unknown]
  - Neuropathy peripheral [Unknown]
  - Atrial fibrillation [Recovering/Resolving]
  - Angina pectoris [Unknown]
  - Haemorrhagic anaemia [Unknown]
  - Procedural nausea [Unknown]
  - Procedural vomiting [Unknown]
  - Drug hypersensitivity [Unknown]
  - Gastrooesophageal reflux disease [Unknown]
